FAERS Safety Report 5793416-2 (Version None)
Quarter: 2008Q2

REPORT INFORMATION
  Report Type: 
  Country: None (occurrence: None)
  Receive Date: 20080627
  Receipt Date: 20080616
  Transmission Date: 20081010
  Serious: Yes (Congenital Anomaly, Other)
  Sender: FDA-Public Use
  Company Number: BR-ROCHE-532647

PATIENT

DRUGS (1)
  1. ROACUTAN [Suspect]
     Indication: ACNE
     Route: 064
     Dates: start: 20070801, end: 20071101

REACTIONS (2)
  - EAR DISORDER [None]
  - HYPOXIA [None]
